FAERS Safety Report 15007564 (Version 4)
Quarter: 2019Q1

REPORT INFORMATION
  Report Type: Spontaneous
  Country: US (occurrence: US)
  Receive Date: 20180613
  Receipt Date: 20190116
  Transmission Date: 20190417
  Serious: Yes (Disabling, Other)
  Sender: FDA-Public Use
  Company Number: US-OTSUKA-2018_015102

PATIENT
  Sex: Female

DRUGS (27)
  1. ABILIFY [Suspect]
     Active Substance: ARIPIPRAZOLE
     Indication: ANXIETY
  2. ARIPIPRAZOLE. [Concomitant]
     Active Substance: ARIPIPRAZOLE
     Indication: AFFECTIVE DISORDER
     Dosage: 1 DF, DAILY AS DIRECTED
     Route: 048
     Dates: start: 20170126, end: 20180127
  3. BUPROPION HCL [Concomitant]
     Active Substance: BUPROPION HYDROCHLORIDE
     Indication: PRODUCT USED FOR UNKNOWN INDICATION
     Dosage: 1 DF, QD
     Route: 048
     Dates: start: 20161006
  4. SIMVASTATIN. [Concomitant]
     Active Substance: SIMVASTATIN
     Indication: BLOOD CHOLESTEROL INCREASED
     Dosage: 1 DF, QD
     Route: 048
     Dates: start: 20170630, end: 20180701
  5. ASPIRIN. [Concomitant]
     Active Substance: ASPIRIN
     Indication: CARDIOVASCULAR DISORDER
     Dosage: 1 DF, QD
     Route: 048
     Dates: start: 20170621, end: 20180622
  6. TERAZOSIN HCL [Concomitant]
     Active Substance: TERAZOSIN HYDROCHLORIDE
     Indication: PRODUCT USED FOR UNKNOWN INDICATION
     Dosage: 1 DF, QD
     Route: 048
     Dates: start: 20170717
  7. LAMOTRIGINE. [Concomitant]
     Active Substance: LAMOTRIGINE
     Indication: AFFECTIVE DISORDER
     Dosage: 50 MG, QD
     Route: 048
     Dates: start: 20170630, end: 20180801
  8. TRIAMCINOLONE ACETONIDE. [Concomitant]
     Active Substance: TRIAMCINOLONE ACETONIDE
     Indication: PRODUCT USED FOR UNKNOWN INDICATION
     Dosage: UNK, QD
     Route: 065
     Dates: start: 20160419, end: 20170420
  9. VANICREAM [Concomitant]
     Active Substance: TITANIUM DIOXIDE\ZINC OXIDE
     Indication: DRY SKIN
     Dosage: UNK
     Route: 065
     Dates: start: 20160419, end: 20170420
  10. NAPROXEN. [Concomitant]
     Active Substance: NAPROXEN
     Indication: PAIN
     Dosage: 1 DF, QD AS NEEDED
     Route: 048
     Dates: start: 20130520, end: 20140521
  11. SULINDAC. [Concomitant]
     Active Substance: SULINDAC
     Indication: INFLAMMATION
  12. LETROZOLE. [Concomitant]
     Active Substance: LETROZOLE
     Indication: PRODUCT USED FOR UNKNOWN INDICATION
     Dosage: 2.5 MG, UNK
     Route: 048
     Dates: start: 20160519, end: 20170817
  13. SULINDAC. [Concomitant]
     Active Substance: SULINDAC
     Indication: PAIN
     Dosage: 1 DF, QD
     Route: 048
     Dates: start: 20140128, end: 20140329
  14. ABILIFY [Suspect]
     Active Substance: ARIPIPRAZOLE
     Indication: BIPOLAR DISORDER
     Dosage: 20 MG, QD
     Route: 065
     Dates: start: 2010, end: 2017
  15. PROPRANOLOL HCL [Concomitant]
     Active Substance: PROPRANOLOL HYDROCHLORIDE
     Indication: BLOOD PRESSURE ABNORMAL
     Dosage: 1 DF, QD
     Route: 048
     Dates: start: 20170630, end: 20180701
  16. PROPRANOLOL HCL [Concomitant]
     Active Substance: PROPRANOLOL HYDROCHLORIDE
     Indication: HEADACHE
  17. AMOXICILLIN. [Concomitant]
     Active Substance: AMOXICILLIN
     Indication: PRODUCT USED FOR UNKNOWN INDICATION
     Dosage: 1 DF, TID
     Route: 048
     Dates: start: 20160603, end: 20160703
  18. SODIUM CHLORIDE. [Concomitant]
     Active Substance: SODIUM CHLORIDE
     Indication: NASAL DRYNESS
     Dosage: UNK
     Route: 045
     Dates: start: 20130610, end: 20140611
  19. NICOTINE. [Concomitant]
     Active Substance: NICOTINE
     Indication: SMOKING CESSATION THERAPY
     Dosage: 2 MG, AS NEEDED
     Route: 048
     Dates: start: 20130213, end: 20140214
  20. ABILIFY [Suspect]
     Active Substance: ARIPIPRAZOLE
     Indication: POST-TRAUMATIC STRESS DISORDER
  21. CALCIUM CARBONATE. [Concomitant]
     Active Substance: CALCIUM CARBONATE
     Indication: PRODUCT USED FOR UNKNOWN INDICATION
     Dosage: 1 DF, TID
     Route: 065
     Dates: start: 20170630, end: 20180701
  22. NAPROXEN. [Concomitant]
     Active Substance: NAPROXEN
     Indication: INFLAMMATION
  23. METRONIDAZOLE. [Concomitant]
     Active Substance: METRONIDAZOLE
     Indication: PRODUCT USED FOR UNKNOWN INDICATION
     Dosage: TWICE A DAY FOR 5 DAYS
     Route: 067
     Dates: start: 20130912
  24. ABILIFY [Suspect]
     Active Substance: ARIPIPRAZOLE
     Indication: MAJOR DEPRESSION
  25. ABILIFY [Suspect]
     Active Substance: ARIPIPRAZOLE
     Indication: INSOMNIA
  26. CYPROHEPTADINE HCL [Concomitant]
     Active Substance: CYPROHEPTADINE HYDROCHLORIDE
     Indication: PRODUCT USED FOR UNKNOWN INDICATION
     Dosage: 2 MG, QD
     Route: 048
     Dates: start: 20170530, end: 20180531
  27. MELATONIN [Concomitant]
     Active Substance: MELATONIN
     Indication: SLEEP DISORDER
     Dosage: 1-2 TAB AS NEEDED AT BED TIME
     Route: 048
     Dates: start: 20170731, end: 20180801

REACTIONS (17)
  - Disability [Unknown]
  - Condition aggravated [Recovered/Resolved]
  - Divorced [Unknown]
  - Suicidal ideation [Recovered/Resolved]
  - Eating disorder [Recovered/Resolved]
  - Anxiety [Unknown]
  - Product use in unapproved indication [Unknown]
  - Compulsive sexual behaviour [Recovered/Resolved]
  - Compulsive shopping [Recovered/Resolved]
  - Bankruptcy [Unknown]
  - Economic problem [Unknown]
  - Anhedonia [Unknown]
  - Gambling disorder [Recovered/Resolved]
  - Injury [Unknown]
  - Suicide attempt [Recovered/Resolved]
  - Pain [Unknown]
  - Obsessive-compulsive disorder [Recovered/Resolved]

NARRATIVE: CASE EVENT DATE: 201211
